FAERS Safety Report 6699372-7 (Version None)
Quarter: 2010Q2

REPORT INFORMATION
  Report Type: 
  Country: None (occurrence: None)
  Receive Date: 20100427
  Receipt Date: 20100422
  Transmission Date: 20101027
  Serious: Yes (Hospitalization, Other)
  Sender: FDA-Public Use
  Company Number: BR-ABBOTT-10P-020-0623712-00

PATIENT
  Sex: Female
  Weight: 69 kg

DRUGS (5)
  1. HUMIRA [Suspect]
     Indication: RHEUMATOID ARTHRITIS
     Route: 058
     Dates: end: 20090401
  2. METHOTREXATE [Concomitant]
     Indication: RHEUMATOID ARTHRITIS
     Route: 048
     Dates: end: 20090401
  3. REPAGLINIDE [Concomitant]
     Indication: DIABETES MELLITUS
     Route: 048
  4. INDAPAMIDE [Concomitant]
     Indication: HYPERTENSION
     Route: 048
  5. PREDNISOLONE [Concomitant]
     Indication: RHEUMATOID ARTHRITIS
     Route: 048

REACTIONS (6)
  - BLOOD CHOLESTEROL INCREASED [None]
  - BONE EROSION [None]
  - DIABETES MELLITUS [None]
  - IMMUNE SYSTEM DISORDER [None]
  - PLEURAL EFFUSION [None]
  - PNEUMONIA [None]
